FAERS Safety Report 13393358 (Version 1)
Quarter: 2017Q1

REPORT INFORMATION
  Report Type: Spontaneous
  Country: US (occurrence: US)
  Receive Date: 20170331
  Receipt Date: 20170331
  Transmission Date: 20170429
  Serious: Yes (Hospitalization)
  Sender: FDA-Public Use
  Company Number: US-SA-2016SA178258

PATIENT
  Age: 7 Year
  Sex: Male
  Weight: 20.41 kg

DRUGS (11)
  1. HEPARIN [Concomitant]
     Active Substance: HEPARIN SODIUM
     Dosage: DOSE:100 UNIT(S)
     Route: 042
     Dates: start: 20160813
  2. LIDOCAINE/PRILOCAINE [Concomitant]
     Dosage: PRIOR
     Route: 061
     Dates: start: 20160813
  3. ZYRTEC [Concomitant]
     Active Substance: CETIRIZINE HYDROCHLORIDE
     Route: 048
     Dates: start: 20120910
  4. CEREZYME [Suspect]
     Active Substance: IMIGLUCERASE
     Dosage: DOSE:68.59 UNIT(S)/KILOGRAM BODYWEIGHT
     Route: 042
     Dates: start: 20130225
  5. DIPHENHYDRAMINE. [Concomitant]
     Active Substance: DIPHENHYDRAMINE
     Indication: ANAPHYLACTIC REACTION
     Route: 048
     Dates: start: 20160813
  6. EPIPEN [Concomitant]
     Active Substance: EPINEPHRINE
     Indication: ANAPHYLACTIC REACTION
     Route: 030
     Dates: start: 20160813
  7. MIRALAX [Concomitant]
     Active Substance: POLYETHYLENE GLYCOL 3350
     Dosage: 1 DOSE ORALLY AS DIRECTED
     Route: 048
     Dates: start: 20120910
  8. NORMAL SALINE [Concomitant]
     Active Substance: SODIUM CHLORIDE
     Route: 042
     Dates: start: 20160813
  9. CEREZYME [Suspect]
     Active Substance: IMIGLUCERASE
     Dosage: DOSE:68.59 UNIT(S)/KILOGRAM BODYWEIGHT
     Route: 042
     Dates: start: 20130225
  10. ACETAMINOPHEN. [Concomitant]
     Active Substance: ACETAMINOPHEN
     Indication: PREMEDICATION
     Dosage: PRIOR
     Route: 048
     Dates: start: 20160813
  11. CEREZYME [Suspect]
     Active Substance: IMIGLUCERASE
     Dosage: DOSE:68.59 UNIT(S)/KILOGRAM BODYWEIGHT
     Route: 042
     Dates: start: 20130225

REACTIONS (2)
  - Device related infection [Unknown]
  - Ear infection [Recovered/Resolved]
